FAERS Safety Report 7469311-X (Version None)
Quarter: 2011Q2

REPORT INFORMATION
  Report Type: 
  Country: None (occurrence: None)
  Receive Date: 20110506
  Receipt Date: 20110506
  Transmission Date: 20111010
  Serious: Yes (Hospitalization)
  Sender: FDA-Public Use
  Company Number: None

PATIENT
  Age: 49 Year
  Sex: Female
  Weight: 64 kg

DRUGS (8)
  1. TRIMETHOPRIM + SULFAMETHOXAZOLE [Suspect]
     Indication: CELLULITIS
     Dosage: ONE TABLET BID PO
     Route: 048
  2. GLATIRAMER ACETATE [Concomitant]
  3. ASCORBIC ACID [Concomitant]
  4. MULTI-VITAMIN [Concomitant]
  5. ACETAMINOPHEN AND HYDROCODONE BITARTRATE [Concomitant]
  6. CHOLECALCIFEROL [Concomitant]
  7. CALCIUM CARBONATE [Concomitant]
  8. OMEGA 3 FATTY ACID [Concomitant]

REACTIONS (5)
  - DIARRHOEA [None]
  - PYREXIA [None]
  - NAUSEA [None]
  - PANCYTOPENIA [None]
  - RASH [None]
